FAERS Safety Report 18170880 (Version 1)
Quarter: 2020Q3

REPORT INFORMATION
  Report Type: Spontaneous
  Country: US (occurrence: US)
  Receive Date: 20200819
  Receipt Date: 20200819
  Transmission Date: 20201103
  Serious: No
  Sender: FDA-Public Use
  Company Number: US-009507513-2008USA008956

PATIENT
  Sex: Female

DRUGS (19)
  1. ALBUTEROL SULFATE. [Concomitant]
     Active Substance: ALBUTEROL SULFATE
     Dosage: UNK
  2. LIDOCAINE. [Concomitant]
     Active Substance: LIDOCAINE
  3. MENOPUR [Concomitant]
     Active Substance: FOLLITROPIN\LUTEINIZING HORMONE
     Dosage: UNK
  4. CODEINE PHOSPHATE (+) PROMETHAZINE HYDROCHLORIDE [Concomitant]
     Dosage: UNK
  5. FOLLISTIM AQ [Suspect]
     Active Substance: FOLLITROPIN
  6. NORTREL (LEVONORGESTREL) [Concomitant]
     Active Substance: LEVONORGESTREL
     Dosage: UNK
  7. PROGESTERONE. [Concomitant]
     Active Substance: PROGESTERONE
     Dosage: UNK
  8. OVIDREL [Concomitant]
     Active Substance: CHORIOGONADOTROPIN ALFA
     Dosage: UNK
  9. AZITHROMYCIN ANHYDROUS. [Concomitant]
     Active Substance: AZITHROMYCIN ANHYDROUS
     Dosage: UNK
  10. FAMCICLOVIR. [Concomitant]
     Active Substance: FAMCICLOVIR
     Dosage: UNK
  11. GANIRELIX ACETATE INJECTION [Concomitant]
     Active Substance: GANIRELIX ACETATE
     Dosage: UNK
  12. ENDOMETRIN [Concomitant]
     Active Substance: PROGESTERONE
  13. FEROSUL [Concomitant]
     Active Substance: FERROUS SULFATE
     Dosage: UNK
  14. NITROFURANTOIN. [Concomitant]
     Active Substance: NITROFURANTOIN
     Dosage: UNK
  15. ALBUTEROL SULFATE. [Concomitant]
     Active Substance: ALBUTEROL SULFATE
  16. METRONIDAZOLE. [Concomitant]
     Active Substance: METRONIDAZOLE
     Dosage: UNK
  17. FOLLISTIM AQ [Suspect]
     Active Substance: FOLLITROPIN
     Dosage: STRENGTH: 900 IU/1.08 ML, DOSE: 100 UNIT
     Route: 058
     Dates: start: 20190703
  18. FLUCONAZOLE. [Concomitant]
     Active Substance: FLUCONAZOLE
     Dosage: UNK
  19. VALACYCLOVIR HYDROCHLORIDE. [Concomitant]
     Active Substance: VALACYCLOVIR HYDROCHLORIDE
     Dosage: UNK

REACTIONS (1)
  - Fungal infection [Unknown]
